FAERS Safety Report 6984908-9 (Version None)
Quarter: 2010Q3

REPORT INFORMATION
  Report Type: 
  Country: None (occurrence: None)
  Receive Date: 20100915
  Receipt Date: 20100908
  Transmission Date: 20110219
  Serious: Yes (Death, Life-Threatening, Other)
  Sender: FDA-Public Use
  Company Number: FR-BRISTOL-MYERS SQUIBB COMPANY-15081862

PATIENT
  Age: 68 Year
  Sex: Male

DRUGS (9)
  1. DASATINIB [Suspect]
     Indication: ACUTE LYMPHOCYTIC LEUKAEMIA
     Route: 048
     Dates: start: 20100302, end: 20100322
  2. CHEMOTHERAPY [Suspect]
     Indication: ACUTE LYMPHOCYTIC LEUKAEMIA
  3. LOVENOX [Concomitant]
     Dosage: 0.7ML X 2
  4. AMLODIPINE [Concomitant]
  5. BISOPROLOL FUMARATE [Concomitant]
  6. NEXIUM [Concomitant]
  7. LASIX [Concomitant]
  8. CORDARONE [Concomitant]
  9. DIFFU-K [Concomitant]

REACTIONS (6)
  - ACUTE PULMONARY OEDEMA [None]
  - ATRIAL FIBRILLATION [None]
  - GASTRIC ULCER [None]
  - HYPERTENSION [None]
  - SHOCK [None]
  - UPPER GASTROINTESTINAL HAEMORRHAGE [None]
